FAERS Safety Report 8227835-1 (Version None)
Quarter: 2012Q1

REPORT INFORMATION
  Report Type: 
  Country: None (occurrence: None)
  Receive Date: 20120322
  Receipt Date: 20120319
  Transmission Date: 20120608
  Serious: Yes (Hospitalization)
  Sender: FDA-Public Use
  Company Number: US-BAYER-200935706NA

PATIENT
  Age: 27 Year
  Sex: Female
  Weight: 81.6 kg

DRUGS (8)
  1. YAZ [Suspect]
     Indication: CONTRACEPTION
  2. YAZ [Suspect]
     Indication: DYSMENORRHOEA
  3. YAZ [Suspect]
     Indication: MENSTRUATION IRREGULAR
  4. YASMIN [Suspect]
     Indication: CONTRACEPTION
  5. YASMIN [Suspect]
     Indication: DYSMENORRHOEA
  6. YAZ [Suspect]
     Indication: PREMENSTRUAL SYNDROME
     Route: 048
     Dates: start: 20090201, end: 20090401
  7. YASMIN [Suspect]
     Indication: PREMENSTRUAL SYNDROME
     Dosage: UNK
     Route: 048
     Dates: start: 20090201, end: 20090401
  8. YASMIN [Suspect]
     Indication: MENSTRUATION IRREGULAR

REACTIONS (7)
  - INJURY [None]
  - PAIN [None]
  - EMOTIONAL DISTRESS [None]
  - ANXIETY [None]
  - PSYCHOLOGICAL TRAUMA [None]
  - FEAR [None]
  - DEEP VEIN THROMBOSIS [None]
